FAERS Safety Report 7074722-0 (Version None)
Quarter: 2010Q4

REPORT INFORMATION
  Report Type: 
  Country: None (occurrence: None)
  Receive Date: 20101029
  Receipt Date: 20101018
  Transmission Date: 20110411
  Serious: Yes (Hospitalization)
  Sender: FDA-Public Use
  Company Number: US-ELI_LILLY_AND_COMPANY-US201008008543

PATIENT
  Sex: Female

DRUGS (20)
  1. FORTEO [Suspect]
     Indication: OSTEOPOROSIS
     Dosage: 20 UG, DAILY (1/D)
     Route: 065
  2. CORTEF [Concomitant]
  3. RITUXAN [Concomitant]
  4. SERTRALINE HYDROCHLORIDE [Concomitant]
  5. PROMETHAZINE [Concomitant]
  6. FOLIC ACID [Concomitant]
  7. TYLENOL EXTRA STRENGTH [Concomitant]
  8. HYDROCODONE BITARTRATE AND ACETAMINOPHEN [Concomitant]
  9. SPIRONOLACTONE [Concomitant]
  10. DILTIAZEM [Concomitant]
  11. LOSARTAN [Concomitant]
  12. ZOLPIDEM [Concomitant]
  13. VITAMIN B6 [Concomitant]
  14. TEMAZEPAM [Concomitant]
  15. PROCTOFOAM [Concomitant]
  16. LEVEMIR [Concomitant]
  17. LEVOTHYROXINE [Concomitant]
  18. PRILOSEC [Concomitant]
  19. GLUCERNA [Concomitant]
  20. IMODIUM [Concomitant]

REACTIONS (1)
  - POLYMYOSITIS [None]
